FAERS Safety Report 5155759-5 (Version None)
Quarter: 2006Q4

REPORT INFORMATION
  Report Type: 
  Country: None (occurrence: None)
  Receive Date: 20061113
  Receipt Date: 20061101
  Transmission Date: 20070319
  Serious: Yes (Death)
  Sender: FDA-Public Use
  Company Number: 163-20785-06110078

PATIENT
  Sex: Female

DRUGS (1)
  1. THALOMID [Suspect]
     Indication: MULTIPLE MYELOMA
     Dosage: 100-200 MG, 4 IN 1 D, ORAL
     Route: 048
     Dates: start: 20060915, end: 20060101

REACTIONS (1)
  - BONE NEOPLASM MALIGNANT [None]
